FAERS Safety Report 15497438 (Version 1)
Quarter: 2018Q4

REPORT INFORMATION
  Report Type: Spontaneous
  Country: US (occurrence: US)
  Receive Date: 20181013
  Receipt Date: 20181013
  Transmission Date: 20190205
  Serious: Yes (Other)
  Sender: FDA-Public Use
  Company Number: None

PATIENT
  Age: 47 Year
  Sex: Female
  Weight: 77.85 kg

DRUGS (12)
  1. CEPHALEXIN 500 MG (POST COITAL) [Concomitant]
  2. PICATO [Suspect]
     Active Substance: INGENOL MEBUTATE
     Indication: SKIN CANCER
     Dosage: ?          QUANTITY:2 .47 G IN EACH TUBE;?
     Route: 061
     Dates: start: 20181006
  3. HYDROXYCHLOROQUINE 200 MG 2X DAY AM/PM [Concomitant]
  4. BUPROPION XL 150 MG (3 PILLS AM 450 MG) [Concomitant]
  5. DEXILANT 60 MG AM [Concomitant]
  6. VYVANSE 50 MG AM [Concomitant]
  7. HYDROXYZINE 100 MG PM [Concomitant]
  8. LAMOTRIGINE 150 MG 2X DAY AM/PM [Concomitant]
  9. VITAMIN D 1000 IC2X DAY [Concomitant]
  10. ASPIRIN 81 MG PM [Concomitant]
  11. DICLOFENAC 75 MG 2X DAY AM/PM [Concomitant]
  12. DICLOFENAC 75 MG 2X DAY AM/PM [Concomitant]

REACTIONS (8)
  - Scab [None]
  - Erythema [None]
  - Pain [None]
  - Headache [None]
  - Blister [None]
  - Facial pain [None]
  - Feeling hot [None]
  - Swelling face [None]

NARRATIVE: CASE EVENT DATE: 20181006
